FAERS Safety Report 9305000 (Version 2)
Quarter: 2013Q2

REPORT INFORMATION
  Report Type: Spontaneous
  Country: US (occurrence: US)
  Receive Date: 20130523
  Receipt Date: 20130604
  Transmission Date: 20140414
  Serious: No
  Sender: FDA-Public Use
  Company Number: US-AMGEN-USASP2013035871

PATIENT
  Age: 10 Year
  Sex: Female

DRUGS (1)
  1. XGEVA [Suspect]
     Indication: BONE GIANT CELL TUMOUR
     Dosage: 120 MG, QWK
     Route: 058
     Dates: start: 20101026

REACTIONS (5)
  - X-ray limb abnormal [Unknown]
  - Bone density increased [Unknown]
  - Hypocalcaemia [Unknown]
  - Hypophosphataemia [Unknown]
  - Osteopetrosis [Unknown]
